FAERS Safety Report 25078493 (Version 1)
Quarter: 2025Q1

REPORT INFORMATION
  Report Type: Spontaneous
  Country: CZ (occurrence: CZ)
  Receive Date: 20250314
  Receipt Date: 20250314
  Transmission Date: 20250409
  Serious: Yes (Hospitalization, Other)
  Sender: JOHNSON AND JOHNSON
  Company Number: CZ-JNJFOC-20240427227

PATIENT
  Age: 40 Year
  Sex: Female

DRUGS (3)
  1. REMICADE [Suspect]
     Active Substance: INFLIXIMAB
     Indication: Enterocolitis
     Route: 041
     Dates: start: 2023
  2. REMICADE [Suspect]
     Active Substance: INFLIXIMAB
     Dosage: GIVEN AFTER 14 DAYS AND THEN AFTER A MONTH
     Route: 041
  3. SOLU-MEDROL [Concomitant]
     Active Substance: METHYLPREDNISOLONE SODIUM SUCCINATE

REACTIONS (5)
  - Hypotension [Unknown]
  - Clostridium colitis [Unknown]
  - Drug ineffective [Unknown]
  - Arthropathy [Unknown]
  - Off label use [Unknown]
